FAERS Safety Report 10646792 (Version 1)
Quarter: 2014Q4

REPORT INFORMATION
  Report Type: Report from Study
  Country: MX (occurrence: MX)
  Receive Date: 20141211
  Receipt Date: 20141211
  Transmission Date: 20150529
  Serious: Yes (Hospitalization)
  Sender: FDA-Public Use
  Company Number: PHHY2014MX162222

PATIENT
  Age: 42 Year
  Sex: Male

DRUGS (2)
  1. EXJADE [Suspect]
     Active Substance: DEFERASIROX
     Indication: MYELODYSPLASTIC SYNDROME
     Dosage: 900 MG, QD
     Route: 065
     Dates: start: 201403, end: 201412
  2. DEFERASIROX [Concomitant]
     Active Substance: DEFERASIROX
     Indication: HAEMOSIDEROSIS
     Dosage: 900 MG, QD
     Route: 065
     Dates: start: 201403, end: 201412

REACTIONS (2)
  - Karyotype analysis abnormal [Not Recovered/Not Resolved]
  - Refractory anaemia with an excess of blasts [Not Recovered/Not Resolved]
